FAERS Safety Report 8245209-4 (Version None)
Quarter: 2012Q1

REPORT INFORMATION
  Report Type: 
  Country: None (occurrence: None)
  Receive Date: 20120329
  Receipt Date: 20120323
  Transmission Date: 20120608
  Serious: Yes (Hospitalization, Other)
  Sender: FDA-Public Use
  Company Number: CZ-ABBOTT-12P-217-0908755-00

PATIENT
  Sex: Female
  Weight: 72 kg

DRUGS (17)
  1. HUMIRA [Suspect]
     Dates: start: 20111101
  2. LISKANTIN [Suspect]
     Indication: PRODUCT USED FOR UNKNOWN INDICATION
  3. PENTASA [Concomitant]
     Indication: PRODUCT USED FOR UNKNOWN INDICATION
     Dates: start: 20090601
  4. HUMIRA [Suspect]
     Dates: start: 20111101
  5. CORTICOSTEROIDS [Concomitant]
     Indication: PRODUCT USED FOR UNKNOWN INDICATION
  6. PROBIOTICS [Concomitant]
     Indication: PRODUCT USED FOR UNKNOWN INDICATION
  7. DIPROPHOS [Concomitant]
     Indication: PRODUCT USED FOR UNKNOWN INDICATION
     Dates: start: 20110101
  8. METHOTREXATE [Concomitant]
     Indication: RHEUMATOID ARTHRITIS
  9. IMODIUM [Concomitant]
     Indication: DIARRHOEA
  10. MEDROL [Concomitant]
     Indication: IRIDOCYCLITIS
     Dates: end: 20080801
  11. METHOTREXATE [Concomitant]
  12. RIFAXIMIN [Concomitant]
     Indication: PRODUCT USED FOR UNKNOWN INDICATION
  13. KEPPRA [Suspect]
     Indication: PRODUCT USED FOR UNKNOWN INDICATION
  14. GAMMAGLOBULINE [Concomitant]
     Indication: PRODUCT USED FOR UNKNOWN INDICATION
     Route: 042
  15. IFX [Concomitant]
     Indication: INFLAMMATORY BOWEL DISEASE
     Dosage: 3RD INITIATION DOSE GIVEN 24 JAN 20088
  16. HUMIRA [Suspect]
     Indication: CROHN'S DISEASE
     Route: 058
     Dates: start: 20080325, end: 20080704
  17. HUMIRA [Suspect]
     Route: 058
     Dates: start: 20110214, end: 20110701

REACTIONS (44)
  - PULMONARY CONGESTION [None]
  - ARTHRALGIA [None]
  - JOINT SWELLING [None]
  - INFECTION [None]
  - STOMATITIS [None]
  - INTERSTITIAL LUNG DISEASE [None]
  - INTESTINAL POLYP [None]
  - FAECAL INCONTINENCE [None]
  - PYREXIA [None]
  - RHINORRHOEA [None]
  - DIARRHOEA [None]
  - VASCULITIS [None]
  - BENIGN INTRACRANIAL HYPERTENSION [None]
  - QUADRIPARESIS [None]
  - PULMONARY HILAR ENLARGEMENT [None]
  - LYMPHOID TISSUE HYPERPLASIA [None]
  - HYPOGAMMAGLOBULINAEMIA [None]
  - EPILEPSY [None]
  - ABDOMINAL PAIN LOWER [None]
  - EYE DISORDER [None]
  - NEUROTOXICITY [None]
  - HEADACHE [None]
  - LOSS OF CONSCIOUSNESS [None]
  - GASTROINTESTINAL CANDIDIASIS [None]
  - ARTHROPATHY [None]
  - GASTROINTESTINAL DISORDER [None]
  - LUNG INFILTRATION [None]
  - FREQUENT BOWEL MOVEMENTS [None]
  - VISUAL IMPAIRMENT [None]
  - WEIGHT DECREASED [None]
  - RECTAL POLYP [None]
  - C-REACTIVE PROTEIN ABNORMAL [None]
  - BODY TEMPERATURE INCREASED [None]
  - NERVOUS SYSTEM DISORDER [None]
  - MENINGITIS ASEPTIC [None]
  - THROMBOCYTOPENIA [None]
  - DRUG HYPERSENSITIVITY [None]
  - BRONCHOPNEUMONIA [None]
  - AUTOIMMUNE DISORDER [None]
  - MENINGITIS [None]
  - CHRONIC SINUSITIS [None]
  - ABDOMINAL PAIN [None]
  - ALVEOLITIS ALLERGIC [None]
  - ENTERITIS [None]
